FAERS Safety Report 7932419-6 (Version None)
Quarter: 2011Q4

REPORT INFORMATION
  Report Type: 
  Country: None (occurrence: None)
  Receive Date: 20111122
  Receipt Date: 20111115
  Transmission Date: 20120403
  Serious: Yes (Hospitalization, Other)
  Sender: FDA-Public Use
  Company Number: US-BIOGENIDEC-2010BI032750

PATIENT
  Sex: Female

DRUGS (3)
  1. AVONEX [Suspect]
     Route: 030
     Dates: start: 20101019
  2. AVONEX [Suspect]
     Indication: MULTIPLE SCLEROSIS
     Route: 030
     Dates: start: 20010301, end: 20080101
  3. AVONEX [Suspect]
     Route: 030
     Dates: start: 20030101, end: 20090701

REACTIONS (21)
  - WEIGHT DECREASED [None]
  - DIPLEGIA [None]
  - SMEAR CERVIX ABNORMAL [None]
  - ABNORMAL SENSATION IN EYE [None]
  - DYSGRAPHIA [None]
  - BALANCE DISORDER [None]
  - GOITRE [None]
  - EXOPHTHALMOS [None]
  - GASTRIC POLYPS [None]
  - CEREBRAL ATROPHY [None]
  - PALPITATIONS [None]
  - THYROID FUNCTION TEST ABNORMAL [None]
  - MEMORY IMPAIRMENT [None]
  - FALL [None]
  - MULTIPLE SCLEROSIS [None]
  - COORDINATION ABNORMAL [None]
  - SQUAMOUS CELL CARCINOMA OF SKIN [None]
  - HYPERTHYROIDISM [None]
  - SKIN INDURATION [None]
  - INFLUENZA LIKE ILLNESS [None]
  - FATIGUE [None]
